FAERS Safety Report 5588282-4 (Version None)
Quarter: 2008Q1

REPORT INFORMATION
  Report Type: 
  Country: None (occurrence: None)
  Receive Date: 20080108
  Receipt Date: 20071220
  Transmission Date: 20080703
  Serious: Yes (Death, Hospitalization)
  Sender: FDA-Public Use
  Company Number: DSA_31104_2007

PATIENT
  Sex: Male

DRUGS (8)
  1. HERBESSER [Suspect]
     Indication: HYPERTENSIVE EMERGENCY
     Dosage: INTRAVENOUS
     Route: 042
     Dates: start: 20071129, end: 20071129
  2. HERBESSER [Suspect]
     Indication: HYPERTENSIVE EMERGENCY
     Dosage: INTRAVENOUS
     Route: 042
     Dates: start: 20071129, end: 20071130
  3. CERCINE                  (CERCINE - DIAZAPAM) [Suspect]
     Indication: SEDATION
     Dosage: 2.5 MG 1 X  INTRAVENOUS
     Route: 042
     Dates: start: 20071130, end: 20071130
  4. DIOVAN [Suspect]
     Indication: HYPERTENSION
     Dosage: ORAL
     Route: 048
     Dates: start: 20071129, end: 20071130
  5. RHYTHMY                                              (RHYTHMY - RILMAZ [Suspect]
     Indication: INSOMNIA
     Dosage: ORAL
     Route: 048
     Dates: start: 20071129
  6. SERENACE                               (SERENACE - HALOPERIDOL) [Suspect]
     Indication: DRUG USE FOR UNKNOWN INDICATION
     Dosage: DF  INTRAVENOUS
     Route: 042
     Dates: start: 20071129, end: 20071129
  7. SERENACE                               (SERENACE - HALOPERIDOL) [Suspect]
     Indication: DRUG USE FOR UNKNOWN INDICATION
     Dosage: DF  INTRAVENOUS
     Route: 042
     Dates: start: 20071130, end: 20071130
  8. CARVEDILOL [Suspect]
     Indication: DRUG USE FOR UNKNOWN INDICATION
     Dosage: DF

REACTIONS (11)
  - AGGRESSION [None]
  - AV DISSOCIATION [None]
  - BLOOD PRESSURE IMMEASURABLE [None]
  - BLOOD PRESSURE SYSTOLIC DECREASED [None]
  - BRADYCARDIA [None]
  - CARDIAC ARREST [None]
  - CARDIAC FAILURE [None]
  - DRUG INEFFECTIVE [None]
  - MYDRIASIS [None]
  - NO THERAPEUTIC RESPONSE [None]
  - RESTLESSNESS [None]
